FAERS Safety Report 4303357-5 (Version None)
Quarter: 2004Q1

REPORT INFORMATION
  Report Type: 
  Country: None (occurrence: None)
  Receive Date: 20040223
  Receipt Date: 20040212
  Transmission Date: 20041129
  Serious: Yes (Other)
  Sender: FDA-Public Use
  Company Number: BE-JNJFOC-20040203179

PATIENT
  Sex: Male
  Weight: 9.4 kg

DRUGS (1)
  1. CISAPRIDE (CISAPRIDE) SUSPENSION [Suspect]
     Indication: GASTROOESOPHAGEAL REFLUX DISEASE
     Dosage: 1.4 MG, 4 IN 1 DAY, UNKNOWN
     Dates: start: 20030520, end: 20030901

REACTIONS (6)
  - ATRIAL THROMBOSIS [None]
  - CARDIAC FAILURE [None]
  - CATHETERISATION CARDIAC ABNORMAL [None]
  - HEPATITIS [None]
  - POST PROCEDURAL COMPLICATION [None]
  - POSTOPERATIVE INFECTION [None]
